FAERS Safety Report 8340926-X (Version None)
Quarter: 2012Q2

REPORT INFORMATION
  Report Type: 
  Country: None (occurrence: None)
  Receive Date: 20120507
  Receipt Date: 20120501
  Transmission Date: 20120825
  Serious: Yes (Disabling, Other)
  Sender: FDA-Public Use
  Company Number: CA-CELGENEUS-028-21880-11110931

PATIENT
  Sex: Male

DRUGS (9)
  1. OXYCODONE HCL [Concomitant]
     Route: 065
  2. ARANESP [Concomitant]
     Route: 065
  3. PROSCAR [Concomitant]
     Route: 065
  4. REVLIMID [Suspect]
     Dosage: 5 MILLIGRAM
     Route: 048
     Dates: start: 20111026, end: 20120424
  5. REVLIMID [Suspect]
     Indication: MULTIPLE MYELOMA
  6. NAPROSYN [Concomitant]
     Route: 065
  7. ZOPICLONE [Concomitant]
     Route: 065
  8. SYNTHROID [Concomitant]
     Route: 065
  9. EXJADE [Concomitant]
     Route: 065

REACTIONS (8)
  - FULL BLOOD COUNT DECREASED [None]
  - ABDOMINAL PAIN LOWER [None]
  - DERMATITIS BULLOUS [None]
  - JOINT SWELLING [None]
  - PRURITUS GENERALISED [None]
  - URTICARIA [None]
  - OEDEMA PERIPHERAL [None]
  - PAIN IN EXTREMITY [None]
